FAERS Safety Report 20540593 (Version 1)
Quarter: 2022Q1

REPORT INFORMATION
  Report Type: Spontaneous
  Country: US (occurrence: None)
  Receive Date: 20220302
  Receipt Date: 20220302
  Transmission Date: 20220423
  Serious: Yes (Hospitalization)
  Sender: FDA-Public Use
  Company Number: None

PATIENT
  Age: 34 Year
  Sex: Male

DRUGS (9)
  1. ILARIS [Suspect]
     Active Substance: CANAKINUMAB
     Indication: Connective tissue disorder
     Dosage: INJECT 150 MG UNDER THE SKIN (SUBCUTANEOUS INJECTION) EVERY 28 DAYS
     Route: 058
     Dates: start: 20210226
  2. CLOBETASOL OIN 0.05% [Concomitant]
  3. DICLOFENAC TAB 25MG DR [Concomitant]
  4. DULOXETINE CAP 30MG [Concomitant]
  5. DULOXETINE CAP 60MG [Concomitant]
  6. GABAPENTIN CAP 100MG [Concomitant]
  7. METHOCARBAM TAB 500MG [Concomitant]
  8. NAPROXEN [Concomitant]
     Active Substance: NAPROXEN
  9. TRINTELLIX TAB 10MG [Concomitant]

REACTIONS (1)
  - Hospitalisation [None]

NARRATIVE: CASE EVENT DATE: 20220302
